FAERS Safety Report 21861420 (Version 1)
Quarter: 2023Q1

REPORT INFORMATION
  Report Type: Spontaneous
  Country: US (occurrence: US)
  Receive Date: 20230113
  Receipt Date: 20230113
  Transmission Date: 20230417
  Serious: Yes (Other)
  Sender: FDA-Public Use
  Company Number: US-FreseniusKabi-FK202300475

PATIENT
  Age: 58 Year
  Sex: Female

DRUGS (9)
  1. DEXAMETHASONE [Suspect]
     Active Substance: DEXAMETHASONE
     Indication: Respiratory failure
     Dosage: 6 MG/DAILY
     Route: 065
  2. DEXAMETHASONE [Suspect]
     Active Substance: DEXAMETHASONE
     Indication: COVID-19 pneumonia
     Route: 042
  3. DEXAMETHASONE [Suspect]
     Active Substance: DEXAMETHASONE
     Indication: Immunosuppressant drug therapy
  4. TOFACITINIB [Suspect]
     Active Substance: TOFACITINIB
     Indication: Respiratory failure
     Dosage: 10 MG TWICE DAILY FOR 10 DAYS
     Route: 065
  5. TOFACITINIB [Suspect]
     Active Substance: TOFACITINIB
     Indication: COVID-19 pneumonia
  6. REMDESIVIR [Concomitant]
     Active Substance: REMDESIVIR
     Indication: Respiratory failure
     Dosage: 200 MG ON DAY 1 FOLLOW BY 100 MG FOR 5 DAYS
     Route: 065
  7. REMDESIVIR [Concomitant]
     Active Substance: REMDESIVIR
     Indication: COVID-19 pneumonia
     Dosage: 200 MG ON DAY 1 FOLLOW BY 100 MG FOR 5 DAYS
     Route: 065
  8. oxygen by high flow nasal cannula [Concomitant]
     Indication: Respiratory failure
     Dosage: 15 L/MIN
     Route: 065
  9. oxygen by high flow nasal cannula [Concomitant]
     Indication: COVID-19 pneumonia

REACTIONS (5)
  - Multiple organ dysfunction syndrome [Not Recovered/Not Resolved]
  - Shock [Not Recovered/Not Resolved]
  - Haemophagocytic lymphohistiocytosis [Not Recovered/Not Resolved]
  - Herpes simplex [Not Recovered/Not Resolved]
  - Enterococcal bacteraemia [Unknown]
